FAERS Safety Report 19475196 (Version 1)
Quarter: 2021Q2

REPORT INFORMATION
  Report Type: Report from Study
  Country: US (occurrence: US)
  Receive Date: 20210630
  Receipt Date: 20210630
  Transmission Date: 20210717
  Serious: Yes (Hospitalization, Other)
  Sender: FDA-Public Use
  Company Number: US-EMD SERONO-9236369

PATIENT
  Age: 38 Year
  Sex: Female

DRUGS (1)
  1. REBIF [Suspect]
     Active Substance: INTERFERON BETA-1A
     Indication: MULTIPLE SCLEROSIS
     Dosage: REBIF: REBIJECT II/MANUAL
     Route: 058
     Dates: start: 20181219

REACTIONS (16)
  - Fall [Unknown]
  - Nystagmus [Unknown]
  - Intervertebral disc protrusion [Unknown]
  - Muscular weakness [Unknown]
  - Basedow^s disease [Unknown]
  - Intervertebral disc compression [Not Recovered/Not Resolved]
  - Diplopia [Unknown]
  - Abnormal weight gain [Unknown]
  - Depression [Unknown]
  - Glycosylated haemoglobin increased [Unknown]
  - Myasthenia gravis [Unknown]
  - Ligament injury [Unknown]
  - Hot flush [Unknown]
  - Eyelid ptosis [Unknown]
  - Hypoaesthesia [Unknown]
  - Dizziness [Unknown]

NARRATIVE: CASE EVENT DATE: 202102
